FAERS Safety Report 9747158 (Version 2)
Quarter: 2013Q4

REPORT INFORMATION
  Report Type: Report from Study
  Country: AU (occurrence: AU)
  Receive Date: 20131211
  Receipt Date: 20131217
  Transmission Date: 20140711
  Serious: Yes (Death)
  Sender: FDA-Public Use
  Company Number: AU-ROCHE-1316333

PATIENT
  Age: 14 Year
  Sex: Male

DRUGS (6)
  1. AVASTIN [Suspect]
     Indication: COLORECTAL CANCER METASTATIC
     Route: 065
  2. CARBOPLATIN [Concomitant]
  3. 5-FU [Concomitant]
  4. OXALIPLATIN [Concomitant]
  5. GEMCITABINE [Concomitant]
  6. IRINOTECAN [Concomitant]

REACTIONS (1)
  - Death [Fatal]
